FAERS Safety Report 10132648 (Version 1)
Quarter: 2014Q2

REPORT INFORMATION
  Report Type: Spontaneous
  Country: US (occurrence: US)
  Receive Date: 20140428
  Receipt Date: 20140428
  Transmission Date: 20141212
  Serious: No
  Sender: FDA-Public Use
  Company Number: US-MALLINCKRODT-T201304140

PATIENT
  Age: 52 Year
  Sex: Female

DRUGS (2)
  1. HYDROCODONE/ACETAMINOPHEN [Suspect]
     Indication: NECK PAIN
     Dosage: 7.5/325 MG,
     Route: 048
     Dates: start: 20130812
  2. HYDROCODONE/ACETAMINOPHEN [Suspect]
     Indication: MUSCULOSKELETAL PAIN

REACTIONS (2)
  - Chest pain [Not Recovered/Not Resolved]
  - Abdominal pain [Not Recovered/Not Resolved]
